FAERS Safety Report 4515850-0 (Version None)
Quarter: 2004Q4

REPORT INFORMATION
  Report Type: 
  Country: None (occurrence: None)
  Receive Date: 20041001
  Receipt Date: 20031007
  Transmission Date: 20050328
  Serious: Yes (Hospitalization)
  Sender: FDA-Public Use
  Company Number: TPA2003A01407

PATIENT
  Age: 77 Year
  Sex: Female

DRUGS (8)
  1. ACTOS [Suspect]
     Indication: DIABETES MELLITUS NON-INSULIN-DEPENDENT
     Dosage: 90 MG, 2 IN 1 D, PER ORAL
     Route: 048
     Dates: start: 20011001
  2. ZAROXOLYN [Concomitant]
  3. ALLOPURINOL [Concomitant]
  4. FUROSEMIDE [Concomitant]
  5. SYNTHROID [Concomitant]
  6. SPIRONOLACTONE [Concomitant]
  7. GLUCOTROL [Concomitant]
  8. POTASSIUM (POTASSIUM) [Concomitant]

REACTIONS (2)
  - BLOOD GLUCOSE ABNORMAL [None]
  - HYPOGLYCAEMIA [None]
